FAERS Safety Report 5383392-9 (Version None)
Quarter: 2007Q3

REPORT INFORMATION
  Report Type: 
  Country: None (occurrence: None)
  Receive Date: 20070710
  Receipt Date: 20070629
  Transmission Date: 20080115
  Serious: Yes (Hospitalization)
  Sender: FDA-Public Use
  Company Number: FR-PFIZER INC-2007054393

PATIENT
  Age: 50 Year
  Sex: Female

DRUGS (6)
  1. AMLODIPINE [Suspect]
     Route: 048
  2. MEPRONIZINE [Suspect]
     Dosage: TEXT:1 DF-FREQ:DAILY
     Route: 048
  3. KARDEGIC [Suspect]
     Route: 048
  4. ELISOR [Suspect]
     Route: 048
  5. DETENSIEL [Suspect]
     Route: 048
  6. AOTAL [Suspect]
     Dosage: TEXT:6 DF-FREQ:DAILY
     Route: 048

REACTIONS (1)
  - SUBDURAL HAEMATOMA [None]
